FAERS Safety Report 4424498-8 (Version None)
Quarter: 2004Q3

REPORT INFORMATION
  Report Type: 
  Country: None (occurrence: None)
  Receive Date: 20040812
  Receipt Date: 20040426
  Transmission Date: 20050211
  Serious: Yes (Hospitalization)
  Sender: FDA-Public Use
  Company Number: DE-GLAXOSMITHKLINE-D0043651A

PATIENT
  Age: 65 Year
  Sex: Male
  Weight: 70 kg

DRUGS (4)
  1. AUGMENTIN '125' [Suspect]
     Indication: SINUSITIS
     Dosage: 1TAB TWICE PER DAY
     Route: 048
     Dates: start: 20040401, end: 20040403
  2. CIPROFLOXACIN HCL [Concomitant]
     Indication: SINUSITIS
     Route: 065
     Dates: start: 20040403
  3. SINUPRET FORTE [Concomitant]
     Indication: SINUSITIS
     Dosage: 1U THREE TIMES PER DAY
     Route: 065
     Dates: start: 20040321
  4. GELOMYRTOL FORTE [Concomitant]
     Indication: SINUSITIS
     Route: 055
     Dates: start: 20030321

REACTIONS (4)
  - PARAESTHESIA [None]
  - PYREXIA [None]
  - SINUSITIS [None]
  - THERAPEUTIC RESPONSE DECREASED [None]
